FAERS Safety Report 6206680-2 (Version None)
Quarter: 2009Q2

REPORT INFORMATION
  Report Type: 
  Country: None (occurrence: None)
  Receive Date: 20090518
  Receipt Date: 20090126
  Transmission Date: 20091009
  Serious: No
  Sender: FDA-Public Use
  Company Number: WAES 0901USA03635

PATIENT
  Age: 44 Year
  Sex: Male

DRUGS (3)
  1. JANUVIA [Suspect]
     Indication: TYPE 2 DIABETES MELLITUS
     Dosage: 50 MG/DAILY/PO
     Route: 048
     Dates: start: 20080426
  2. LANTUS [Concomitant]
  3. NOVOLOG [Concomitant]

REACTIONS (1)
  - BLOOD GLUCOSE INCREASED [None]
